FAERS Safety Report 5178501-0 (Version None)
Quarter: 2006Q4

REPORT INFORMATION
  Report Type: 
  Country: None (occurrence: None)
  Receive Date: 20061208
  Receipt Date: 20061123
  Transmission Date: 20070319
  Serious: Yes (Hospitalization, Other)
  Sender: FDA-Public Use
  Company Number: 2006RR-04653

PATIENT
  Age: 36 Year
  Sex: Female

DRUGS (1)
  1. IBUPROFEN [Suspect]
     Indication: HEADACHE
     Dosage: ORAL
     Route: 048

REACTIONS (12)
  - ALANINE AMINOTRANSFERASE INCREASED [None]
  - BLOOD ALKALINE PHOSPHATASE INCREASED [None]
  - BLOOD CREATINE INCREASED [None]
  - DERMATITIS EXFOLIATIVE GENERALISED [None]
  - DRUG HYPERSENSITIVITY [None]
  - EOSINOPHILIA [None]
  - FACE OEDEMA [None]
  - MALAISE [None]
  - NEUTROPHILIA [None]
  - PERSISTENT GENERALISED LYMPHADENOPATHY [None]
  - PYREXIA [None]
  - WHITE BLOOD CELL COUNT INCREASED [None]
